FAERS Safety Report 6053532-7 (Version None)
Quarter: 2009Q1

REPORT INFORMATION
  Report Type: 
  Country: None (occurrence: None)
  Receive Date: 20090127
  Receipt Date: 20080813
  Transmission Date: 20090719
  Serious: Yes (Hospitalization, Other)
  Sender: FDA-Public Use
  Company Number: US-TEVA-175972USA

PATIENT
  Sex: Female
  Weight: 78.088 kg

DRUGS (4)
  1. COPAXONE [Suspect]
     Indication: MULTIPLE SCLEROSIS
     Route: 058
     Dates: start: 20050101, end: 20050101
  2. VICODIN [Concomitant]
     Indication: PAIN
  3. DIAZEPAM [Concomitant]
     Indication: PAIN
  4. BACLOFEN [Concomitant]

REACTIONS (2)
  - APNOEA [None]
  - INJECTION SITE HAEMORRHAGE [None]
